FAERS Safety Report 7880128-4 (Version None)
Quarter: 2011Q4

REPORT INFORMATION
  Report Type: 
  Country: None (occurrence: None)
  Receive Date: 20111101
  Receipt Date: 20111021
  Transmission Date: 20120403
  Serious: Yes (Hospitalization)
  Sender: FDA-Public Use
  Company Number: US-BAYER-2011-008721

PATIENT
  Age: 32 Year
  Sex: Female
  Weight: 86.168 kg

DRUGS (10)
  1. DROSPIRENONE AND ETHINYL ESTRADIOL [Suspect]
     Indication: CONTRACEPTION
     Dosage: UNK
     Route: 048
     Dates: start: 20071128, end: 20100130
  2. YASMIN [Suspect]
     Indication: CONTRACEPTION
     Dosage: UNK
     Route: 048
     Dates: start: 20071128, end: 20100130
  3. RHINOCORT [Concomitant]
     Dosage: UNK
     Route: 045
     Dates: start: 20020101, end: 20100101
  4. ALPRAZOLAM [Concomitant]
     Dosage: UNK
     Dates: start: 20070101, end: 20100101
  5. METROGEL [Concomitant]
  6. ZOLOFT [Concomitant]
  7. ZYRTEC [Concomitant]
  8. SYNTHROID [Concomitant]
     Dosage: UNK
     Dates: start: 20020101
  9. SERTRALINE HYDROCHLORIDE [Concomitant]
  10. NEXIUM [Concomitant]
     Dosage: UNK
     Dates: start: 20020101, end: 20100101

REACTIONS (7)
  - DIARRHOEA [None]
  - ABDOMINAL PAIN [None]
  - PAIN [None]
  - EMOTIONAL DISTRESS [None]
  - GALLBLADDER DISORDER [None]
  - CHOLECYSTITIS [None]
  - INJURY [None]
